FAERS Safety Report 19767811 (Version 1)
Quarter: 2021Q3

REPORT INFORMATION
  Report Type: Report from Study
  Country: US (occurrence: US)
  Receive Date: 20210831
  Receipt Date: 20210831
  Transmission Date: 20211014
  Serious: Yes (Other)
  Sender: FDA-Public Use
  Company Number: US-TAKEDA-2021TUS053960

PATIENT
  Age: 12 Year
  Sex: Male

DRUGS (3)
  1. PEGYLATED COAGULATION FACTOR VIII [Suspect]
     Active Substance: ANTIHEMOPHILIC FACTOR, PEGYLATED (MW 20000) HUMAN SEQUENCE RECOMBINANT
     Indication: FACTOR VIII DEFICIENCY
     Dosage: 30 INTERNATIONAL UNIT/KILOGRAM, TWO TIMES AWEEK
     Route: 065
     Dates: start: 2019
  2. PEGYLATED COAGULATION FACTOR VIII [Suspect]
     Active Substance: ANTIHEMOPHILIC FACTOR, PEGYLATED (MW 20000) HUMAN SEQUENCE RECOMBINANT
     Indication: FACTOR VIII DEFICIENCY
     Dosage: 30 INTERNATIONAL UNIT/KILOGRAM, TWO TIMES AWEEK
     Route: 065
     Dates: start: 2019
  3. PEGYLATED COAGULATION FACTOR VIII [Suspect]
     Active Substance: ANTIHEMOPHILIC FACTOR, PEGYLATED (MW 20000) HUMAN SEQUENCE RECOMBINANT
     Indication: FACTOR VIII DEFICIENCY
     Dosage: 30 INTERNATIONAL UNIT/KILOGRAM, TWO TIMES AWEEK
     Route: 065
     Dates: start: 2019

REACTIONS (2)
  - Haemorrhage [Unknown]
  - Drug ineffective [Unknown]
